FAERS Safety Report 15018413 (Version 1)
Quarter: 2018Q2

REPORT INFORMATION
  Report Type: Spontaneous
  Country: US (occurrence: US)
  Receive Date: 20180615
  Receipt Date: 20180615
  Transmission Date: 20180711
  Serious: Yes (Hospitalization)
  Sender: FDA-Public Use
  Company Number: US-UNITED THERAPEUTICS-UNT-2018-008433

PATIENT
  Sex: Female

DRUGS (1)
  1. ORENITRAM [Suspect]
     Active Substance: TREPROSTINIL
     Indication: PULMONARY ARTERIAL HYPERTENSION
     Dosage: 9.25 MG, TID
     Route: 048
     Dates: start: 20170706

REACTIONS (2)
  - Abdominal pain [Unknown]
  - Haematochezia [Unknown]

NARRATIVE: CASE EVENT DATE: 20180606
